FAERS Safety Report 6810781-5 (Version None)
Quarter: 2010Q2

REPORT INFORMATION
  Report Type: 
  Country: None (occurrence: None)
  Receive Date: 20100630
  Receipt Date: 20080617
  Transmission Date: 20101027
  Serious: No
  Sender: FDA-Public Use
  Company Number: US-PFIZER INC-2008043797

PATIENT
  Sex: Female
  Weight: 63.6 kg

DRUGS (9)
  1. NICOTROL [Suspect]
     Indication: SMOKING CESSATION THERAPY
  2. GABAPENTIN [Concomitant]
  3. CYTOXAN [Concomitant]
  4. GLUCOPHAGE [Concomitant]
  5. LISINOPRIL [Concomitant]
  6. ZANTAC [Concomitant]
  7. ACETYLSALICYLIC ACID [Concomitant]
  8. CENTRUM SILVER [Concomitant]
  9. PRAVASTATIN [Concomitant]

REACTIONS (1)
  - DRUG INEFFECTIVE [None]
